FAERS Safety Report 16365157 (Version 4)
Quarter: 2019Q3

REPORT INFORMATION
  Report Type: Spontaneous
  Country: US (occurrence: US)
  Receive Date: 20190529
  Receipt Date: 20190710
  Transmission Date: 20191004
  Serious: Yes (Hospitalization)
  Sender: FDA-Public Use
  Company Number: US-BIOGEN-2019BI00741652

PATIENT
  Age: 39 Year
  Sex: Male

DRUGS (1)
  1. TYSABRI [Suspect]
     Active Substance: NATALIZUMAB
     Indication: MULTIPLE SCLEROSIS
     Route: 042
     Dates: start: 20180719

REACTIONS (6)
  - Multiple sclerosis relapse [Recovered/Resolved]
  - Nuclear magnetic resonance imaging brain abnormal [Unknown]
  - Localised infection [Unknown]
  - Urinary incontinence [Unknown]
  - Hand fracture [Unknown]
  - Spinal pain [Unknown]

NARRATIVE: CASE EVENT DATE: 20190507
